FAERS Safety Report 9645406 (Version 2)
Quarter: 2013Q4

REPORT INFORMATION
  Report Type: Spontaneous
  Country: US (occurrence: US)
  Receive Date: 20131025
  Receipt Date: 20131115
  Transmission Date: 20140711
  Serious: Yes (Other)
  Sender: FDA-Public Use
  Company Number: US-JNJFOC-20131012950

PATIENT
  Age: 76 Year
  Sex: Male
  Weight: 117.48 kg

DRUGS (2)
  1. XARELTO [Suspect]
     Indication: CEREBROVASCULAR ACCIDENT PROPHYLAXIS
     Route: 048
     Dates: start: 20130603
  2. XARELTO [Suspect]
     Indication: ATRIAL FIBRILLATION
     Route: 048
     Dates: start: 20130603

REACTIONS (4)
  - Haematoma [Recovered/Resolved]
  - Muscle rupture [Recovered/Resolved]
  - Activated partial thromboplastin time prolonged [Unknown]
  - Incorrect dose administered [Unknown]
